FAERS Safety Report 24188269 (Version 1)
Quarter: 2024Q3

REPORT INFORMATION
  Report Type: Spontaneous
  Country: US (occurrence: None)
  Receive Date: 20240807
  Receipt Date: 20240807
  Transmission Date: 20241016
  Serious: No
  Sender: Public
  Company Number: None

PATIENT

DRUGS (2)
  1. LEVOTHYROXINE [Suspect]
     Active Substance: LEVOTHYROXINE\LEVOTHYROXINE SODIUM
  2. SEVELAMER [Concomitant]
     Active Substance: SEVELAMER

REACTIONS (4)
  - Decompensated hypothyroidism [None]
  - Inappropriate schedule of product administration [None]
  - Blood thyroid stimulating hormone decreased [None]
  - Thyroxine free decreased [None]
